FAERS Safety Report 8821152 (Version 1)
Quarter: 2012Q4

REPORT INFORMATION
  Report Type: 
  Country: US (occurrence: US)
  Receive Date: 20121002
  Receipt Date: 20121002
  Transmission Date: 20130627
  Serious: No
  Sender: FDA-Public Use
  Company Number: US-BRISTOL-MYERS SQUIBB COMPANY-16492332

PATIENT
  Age: 47 Year
  Sex: Female

DRUGS (4)
  1. BUSPAR [Suspect]
     Indication: ANXIETY
     Dates: start: 2011
  2. LEXAPRO [Suspect]
     Indication: DEPRESSION
     Dosage: 5mg(27Jun-2011),2.5mg 2 times a day,15mg,10mg,Dosingtime changed from bedtime morning on Mar 2012
     Route: 048
     Dates: start: 20110621, end: 20110626
  3. LEXAPRO [Suspect]
     Indication: GENERALISED ANXIETY DISORDER
     Dosage: 5mg(27Jun-2011),2.5mg 2 times a day,15mg,10mg,Dosingtime changed from bedtime morning on Mar 2012
     Route: 048
     Dates: start: 20110621, end: 20110626
  4. PRILOSEC [Concomitant]
     Indication: GASTROOESOPHAGEAL REFLUX DISEASE

REACTIONS (3)
  - Heart rate increased [Not Recovered/Not Resolved]
  - Insomnia [Recovered/Resolved]
  - Nervousness [Recovered/Resolved]
